FAERS Safety Report 6010867-1 (Version None)
Quarter: 2008Q4

REPORT INFORMATION
  Report Type: 
  Country: None (occurrence: None)
  Receive Date: 20081218
  Receipt Date: 20081212
  Transmission Date: 20090506
  Serious: Yes (Hospitalization)
  Sender: FDA-Public Use
  Company Number: FR-AVENTIS-200814368FR

PATIENT
  Age: 61 Year
  Sex: Male

DRUGS (10)
  1. CLAFORAN [Suspect]
     Indication: SEPSIS
     Route: 042
     Dates: start: 20080211, end: 20080310
  2. CLAFORAN [Suspect]
     Route: 042
     Dates: start: 20080211, end: 20080310
  3. CLAFORAN [Suspect]
     Indication: ABSCESS
     Route: 042
     Dates: start: 20080211, end: 20080310
  4. DALACINE [Concomitant]
     Indication: SEPSIS
     Route: 042
     Dates: start: 20080215, end: 20080310
  5. DALACINE [Concomitant]
     Route: 042
     Dates: start: 20080215, end: 20080310
  6. DALACINE [Concomitant]
     Indication: ABSCESS
     Route: 042
     Dates: start: 20080215, end: 20080310
  7. TAVANIC [Concomitant]
     Indication: SEPSIS
     Dates: start: 20080211, end: 20080214
  8. TAVANIC [Concomitant]
     Dates: start: 20080211, end: 20080214
  9. TAVANIC [Concomitant]
     Indication: ABSCESS
     Dates: start: 20080211, end: 20080214
  10. VANCOMYCIN [Concomitant]
     Dates: start: 20080211

REACTIONS (2)
  - DERMATITIS EXFOLIATIVE [None]
  - EOSINOPHILIA [None]
